FAERS Safety Report 6887113-X (Version None)
Quarter: 2010Q3

REPORT INFORMATION
  Report Type: 
  Country: None (occurrence: None)
  Receive Date: 20100730
  Receipt Date: 20100726
  Transmission Date: 20110219
  Serious: Yes (Death, Hospitalization)
  Sender: FDA-Public Use
  Company Number: PL-JNJFOC-20100708139

PATIENT
  Age: 75 Year
  Sex: Female

DRUGS (3)
  1. RISPOLEPT [Suspect]
     Indication: DELUSIONAL DISORDER, UNSPECIFIED TYPE
     Route: 048
  2. FUROSEMID [Suspect]
     Indication: CARDIOVASCULAR INSUFFICIENCY
  3. METHIMAZOLE [Suspect]
     Indication: HYPERTHYROIDISM

REACTIONS (1)
  - MYOCARDIAL INFARCTION [None]
